FAERS Safety Report 9076090 (Version 1)
Quarter: 2013Q1

REPORT INFORMATION
  Report Type: Report from Study
  Country: US (occurrence: US)
  Receive Date: 20130129
  Receipt Date: 20130129
  Transmission Date: 20140127
  Serious: No
  Sender: FDA-Public Use
  Company Number: US-ABBOTT-12P-163-0932680-00

PATIENT
  Age: 74 Year
  Sex: Male

DRUGS (13)
  1. HUMIRA 40 MG/0.8 ML PEN [Suspect]
     Indication: CROHN^S DISEASE
     Dates: start: 20120423, end: 20120522
  2. THYROXINE [Concomitant]
     Indication: THYROID DISORDER
     Dosage: 137MCG DAILY
     Route: 048
  3. MICARDIS [Concomitant]
     Indication: HYPERTENSION
     Dosage: 80MG DAILY
     Route: 048
  4. POTASSIUM [Concomitant]
     Indication: BLOOD POTASSIUM DECREASED
     Dosage: 10MEG DAILY
     Route: 048
  5. LASIX [Concomitant]
     Indication: PRODUCT USED FOR UNKNOWN INDICATION
     Route: 048
  6. NORVASC [Concomitant]
     Indication: HYPERTENSION
     Dosage: 5MG DAILY
     Route: 048
  7. ATENOLOL [Concomitant]
     Indication: PRODUCT USED FOR UNKNOWN INDICATION
     Route: 048
  8. WARFARIN [Concomitant]
     Indication: THROMBOSIS PROPHYLAXIS
     Dosage: 2.5MG DAILY
     Route: 048
  9. LIALDA [Concomitant]
     Indication: CROHN^S DISEASE
     Route: 048
  10. PREDNISONE [Concomitant]
     Indication: CROHN^S DISEASE
     Route: 048
  11. DIPHENOXYLATE [Concomitant]
     Indication: DIARRHOEA
     Dosage: 4 TABLETS DAILY
     Route: 048
  12. VITAMINS [Concomitant]
     Indication: PRODUCT USED FOR UNKNOWN INDICATION
     Dosage: DAILY
     Route: 048
  13. LATANOPROST [Concomitant]
     Indication: OCULAR HYPERTENSION
     Dosage: 2.5M; 1 DROP IN BOTH EYES AT BEDTIME
     Route: 047

REACTIONS (2)
  - Drug ineffective [Not Recovered/Not Resolved]
  - Diarrhoea [Not Recovered/Not Resolved]
